FAERS Safety Report 23568410 (Version 1)
Quarter: 2024Q1

REPORT INFORMATION
  Report Type: Report from Study
  Country: US (occurrence: US)
  Receive Date: 20240227
  Receipt Date: 20240227
  Transmission Date: 20240410
  Serious: Yes (Hospitalization)
  Sender: FDA-Public Use
  Company Number: US-JAZZ PHARMACEUTICALS-2023-US-021675

PATIENT
  Age: 8 Year
  Sex: Male

DRUGS (10)
  1. EPIDIOLEX [Suspect]
     Active Substance: CANNABIDIOL
     Indication: Lennox-Gastaut syndrome
     Dosage: 1.2 MILLILITER, BID, G-TUBE
     Dates: start: 202210
  2. EPIDIOLEX [Suspect]
     Active Substance: CANNABIDIOL
     Dosage: 120 MILLIGRAM, BID G-TUBE
     Dates: start: 20201215
  3. RUFINAMIDE [Concomitant]
     Active Substance: RUFINAMIDE
  4. ONFI [Concomitant]
     Active Substance: CLOBAZAM
  5. VIGABATRIN [Concomitant]
     Active Substance: VIGABATRIN
  6. KEPPRA [Concomitant]
     Active Substance: LEVETIRACETAM
  7. MONTELUKAST [Concomitant]
     Active Substance: MONTELUKAST SODIUM
  8. ZOFRAN [Concomitant]
     Active Substance: ONDANSETRON HYDROCHLORIDE
  9. CUVPOSA [GLYCOPYRRONIUM] [Concomitant]
  10. FOLIC ACID [Concomitant]
     Active Substance: FOLIC ACID

REACTIONS (3)
  - Vomiting [Unknown]
  - Gastrointestinal tract irritation [Unknown]
  - Gastrointestinal disorder [Unknown]

NARRATIVE: CASE EVENT DATE: 20231019
